FAERS Safety Report 7392780-0 (Version None)
Quarter: 2011Q2

REPORT INFORMATION
  Report Type: 
  Country: None (occurrence: None)
  Receive Date: 20110404
  Receipt Date: 20110329
  Transmission Date: 20111010
  Serious: Yes (Hospitalization, Other)
  Sender: FDA-Public Use
  Company Number: PHHO2010FR16017

PATIENT
  Sex: Male
  Weight: 85 kg

DRUGS (4)
  1. NEORAL [Suspect]
     Indication: RENAL TRANSPLANT
     Dosage: 150 MG, BID
     Route: 048
     Dates: start: 20100813, end: 20100913
  2. PREDNISOLONE [Concomitant]
  3. NEORAL [Suspect]
     Dosage: UNK
     Route: 048
     Dates: start: 20100914, end: 20101114
  4. MYCOPHENOLIC ACID [Suspect]
     Indication: RENAL TRANSPLANT
     Dosage: 720 MG, BID
     Route: 048
     Dates: start: 20100812, end: 20101114

REACTIONS (5)
  - RENAL FAILURE ACUTE [None]
  - CYTOMEGALOVIRUS INFECTION [None]
  - LYMPHOCELE [None]
  - PYELONEPHRITIS ACUTE [None]
  - HYDROCELE MALE INFECTED [None]
